FAERS Safety Report 5615520-1 (Version None)
Quarter: 2008Q1

REPORT INFORMATION
  Report Type: 
  Country: None (occurrence: None)
  Receive Date: 20080204
  Receipt Date: 20080204
  Transmission Date: 20080703
  Serious: Yes (Other)
  Sender: FDA-Public Use
  Company Number: None

PATIENT
  Age: 49 Year
  Sex: Male
  Weight: 108.8633 kg

DRUGS (1)
  1. DURAGESIC-100 [Suspect]
     Dosage: WOUND TRANSPARENCY/COVERIN AS NEEDED TOP TRANSDERMAL SYSTEM OVERLAYS AS NEEDED TRANSDERMAL
     Route: 061

REACTIONS (1)
  - PHARMACEUTICAL PRODUCT COMPLAINT [None]
